FAERS Safety Report 16139847 (Version 1)
Quarter: 2019Q2

REPORT INFORMATION
  Report Type: Report from Study
  Country: KR (occurrence: KR)
  Receive Date: 20190401
  Receipt Date: 20190401
  Transmission Date: 20190711
  Serious: Yes (Hospitalization)
  Sender: FDA-Public Use
  Company Number: KR-BAYER-2019-060402

PATIENT
  Age: 81 Year
  Sex: Female

DRUGS (5)
  1. ASPIRIN. [Suspect]
     Active Substance: ASPIRIN
     Indication: CEREBROVASCULAR ACCIDENT
     Dosage: 100 MG, QD
  2. AMLODIPINE [Suspect]
     Active Substance: AMLODIPINE BESYLATE
     Indication: HYPERTENSION
     Dosage: 6.944 MG, QD
  3. CHROREL [Suspect]
     Active Substance: CLOPIDOGREL BISULFATE
     Dosage: 97.875 MG, QD
  4. MUCOTRA [Suspect]
     Active Substance: REBAMIPIDE
     Dosage: 100 MG, BID
  5. GLIATILIN [Suspect]
     Active Substance: CHOLINE ALFOSCERATE
     Dosage: 400 MG, BID

REACTIONS (2)
  - Hepatic function abnormal [None]
  - Inability to afford medication [None]

NARRATIVE: CASE EVENT DATE: 20180503
